FAERS Safety Report 17583951 (Version 1)
Quarter: 2020Q1

REPORT INFORMATION
  Report Type: Spontaneous
  Country: ES (occurrence: ES)
  Receive Date: 20200326
  Receipt Date: 20200326
  Transmission Date: 20200409
  Serious: Yes (Life-Threatening, Congenital Anomaly)
  Sender: FDA-Public Use
  Company Number: ES-TEVA-2020-ES-1210155

PATIENT
  Age: 61 Year

DRUGS (1)
  1. OXALIPLATINO TEVA 5 MG/ML CONCENTRADO PARA SOLUCION PARA PERFUSION EFG [Suspect]
     Active Substance: OXALIPLATIN
     Indication: COLORECTAL CANCER
     Dosage: 260 MG (130 MG / M2) C / 21 DAYS
     Route: 042
     Dates: start: 20200224, end: 20200224

REACTIONS (5)
  - Congenital laryngeal stridor [Recovered/Resolved]
  - Respiratory distress [Recovered/Resolved]
  - Tachycardia [Recovered/Resolved]
  - Dyspnoea [Recovered/Resolved]
  - Anaphylactic reaction [Recovered/Resolved]

NARRATIVE: CASE EVENT DATE: 20200224
